FAERS Safety Report 10432535 (Version 2)
Quarter: 2014Q3

REPORT INFORMATION
  Report Type: Report from Study
  Country: US (occurrence: US)
  Receive Date: 20140905
  Receipt Date: 20140905
  Transmission Date: 20150326
  Serious: Yes (Hospitalization)
  Sender: FDA-Public Use
  Company Number: US-BAYER-2014-075643

PATIENT
  Age: 59 Year
  Sex: Male

DRUGS (2)
  1. NEXAVAR [Suspect]
     Active Substance: SORAFENIB
     Indication: HEPATIC CANCER
     Dosage: 400 MG, BID
     Route: 048
     Dates: start: 201405
  2. NEXAVAR [Suspect]
     Active Substance: SORAFENIB
     Indication: HEPATIC CANCER
     Dosage: 200 MG, BID
     Route: 048
     Dates: end: 201406

REACTIONS (9)
  - Nausea [Not Recovered/Not Resolved]
  - Hypersomnia [None]
  - Hyperkeratosis [None]
  - Oedema peripheral [None]
  - Blood calcium decreased [None]
  - Vomiting [Recovering/Resolving]
  - Weight decreased [None]
  - Fatigue [None]
  - Blood potassium decreased [None]

NARRATIVE: CASE EVENT DATE: 201405
